FAERS Safety Report 16394518 (Version 1)
Quarter: 2019Q2

REPORT INFORMATION
  Report Type: Spontaneous
  Country: ES (occurrence: ES)
  Receive Date: 20190605
  Receipt Date: 20190605
  Transmission Date: 20190711
  Serious: Yes (Death, Life-Threatening, Hospitalization, Other)
  Sender: FDA-Public Use
  Company Number: ES-JNJFOC-20190539127

PATIENT
  Age: 70 Year
  Sex: Male

DRUGS (1)
  1. VOKANAMET [Suspect]
     Active Substance: CANAGLIFLOZIN\METFORMIN HYDROCHLORIDE
     Indication: TYPE 2 DIABETES MELLITUS
     Route: 048

REACTIONS (5)
  - Hyperkalaemia [Unknown]
  - Anuria [Unknown]
  - Renal failure [Unknown]
  - Toxicity to various agents [Unknown]
  - Lactic acidosis [Fatal]
